FAERS Safety Report 5195849-4 (Version None)
Quarter: 2007Q1

REPORT INFORMATION
  Report Type: 
  Country: None (occurrence: None)
  Receive Date: 20070102
  Receipt Date: 20061219
  Transmission Date: 20070707
  Serious: Yes (Hospitalization)
  Sender: FDA-Public Use
  Company Number: HQWYE662105OCT06

PATIENT
  Sex: Female
  Weight: 55 kg

DRUGS (5)
  1. ENBREL [Suspect]
     Indication: RHEUMATOID ARTHRITIS
     Route: 058
     Dates: start: 20060904
  2. KETOPROFEN [Suspect]
     Indication: RHEUMATOID ARTHRITIS
     Dosage: 2 DF/DAY
     Route: 065
     Dates: start: 20060227
  3. LIVALO [Suspect]
     Route: 048
     Dates: start: 20060816, end: 20060925
  4. ISCOTIN [Suspect]
     Indication: ANTIBIOTIC PROPHYLAXIS
     Route: 065
     Dates: start: 20060817, end: 20060925
  5. URSO [Concomitant]
     Dosage: 600 DF/DAY
     Route: 048

REACTIONS (9)
  - ALANINE AMINOTRANSFERASE INCREASED [None]
  - ANOREXIA [None]
  - ASPARTATE AMINOTRANSFERASE INCREASED [None]
  - BLOOD ALKALINE PHOSPHATASE INCREASED [None]
  - BLOOD BILIRUBIN INCREASED [None]
  - BLOOD LACTATE DEHYDROGENASE INCREASED [None]
  - LACK OF SATIETY [None]
  - LIVER DISORDER [None]
  - NAUSEA [None]
